FAERS Safety Report 9454513 (Version 2)
Quarter: 2014Q3

REPORT INFORMATION
  Report Type: Spontaneous
  Country: US (occurrence: None)
  Receive Date: 20130808
  Receipt Date: 20140815
  Transmission Date: 20150326
  Serious: Yes (Hospitalization)
  Sender: FDA-Public Use
  Company Number: 2013US002098

PATIENT
  Age: 80 Year
  Sex: Male
  Weight: 91 kg

DRUGS (1)
  1. ICLUSIG [Suspect]
     Active Substance: PONATINIB
     Indication: CHRONIC MYELOID LEUKAEMIA
     Route: 048
     Dates: end: 20130714

REACTIONS (10)
  - Pulmonary oedema [None]
  - Lethargy [None]
  - Dysstasia [None]
  - Fall [None]
  - Oxygen saturation decreased [None]
  - Faecal incontinence [None]
  - Dysphonia [None]
  - PO2 decreased [None]
  - Abasia [None]
  - Polyneuropathy [None]

NARRATIVE: CASE EVENT DATE: 20130714
